FAERS Safety Report 9891962 (Version 3)
Quarter: 2014Q2

REPORT INFORMATION
  Report Type: Spontaneous
  Country: US (occurrence: US)
  Receive Date: 20140212
  Receipt Date: 20140401
  Transmission Date: 20141212
  Serious: Yes (Hospitalization, Other)
  Sender: FDA-Public Use
  Company Number: US-GILEAD-2014-0093753

PATIENT
  Sex: Female

DRUGS (1)
  1. LETAIRIS [Suspect]
     Indication: PRODUCT USED FOR UNKNOWN INDICATION
     Dosage: 10 MG, QD
     Route: 065
     Dates: start: 20111018

REACTIONS (6)
  - Osteoporosis [Unknown]
  - Back disorder [Unknown]
  - Stress fracture [Unknown]
  - Oxygen saturation decreased [Unknown]
  - Malaise [Unknown]
  - Fatigue [Unknown]
